FAERS Safety Report 10417729 (Version 1)
Quarter: 2014Q2

REPORT INFORMATION
  Report Type: Spontaneous
  Country: US (occurrence: None)
  Receive Date: 20140609
  Receipt Date: 20140609
  Transmission Date: 20141212
  Serious: No
  Sender: FDA-Public Use
  Company Number: 2014TUS001735

PATIENT
  Age: 71 Year
  Sex: Female

DRUGS (4)
  1. BRINTELLIX [Suspect]
     Indication: MAJOR DEPRESSION
     Route: 048
  2. ATORVASTATIN (ATORVASTATIN) [Concomitant]
  3. SYNTHROID (LEVOTHYROXINE SODIUM) [Concomitant]
  4. ALBUTEROL (SALBUTAMOL) [Concomitant]

REACTIONS (1)
  - Palpitations [None]
